FAERS Safety Report 6341966-2 (Version None)
Quarter: 2009Q3

REPORT INFORMATION
  Report Type: 
  Country: None (occurrence: None)
  Receive Date: 20090904
  Receipt Date: 20090825
  Transmission Date: 20100115
  Serious: Yes (Death, Hospitalization)
  Sender: FDA-Public Use
  Company Number: JP-AMGEN-US341568

PATIENT
  Sex: Female

DRUGS (6)
  1. ENBREL [Suspect]
     Indication: RHEUMATOID ARTHRITIS
     Dosage: 25 MG ONCE WEEKLY; LYOPHIZED
     Route: 058
     Dates: start: 20070127
  2. ENBREL [Suspect]
     Dosage: 25 MG ONCE WEEKLY; SOLUTION FOR INJECTION
     Route: 058
     Dates: end: 20081216
  3. PRELONE [Suspect]
     Indication: RHEUMATOID ARTHRITIS
     Route: 048
     Dates: start: 20060601, end: 20090314
  4. RHEUMATREX [Suspect]
     Indication: RHEUMATOID ARTHRITIS
     Route: 048
     Dates: start: 20051101, end: 20051101
  5. RHEUMATREX [Suspect]
     Route: 048
     Dates: start: 20051101, end: 20051101
  6. RHEUMATREX [Suspect]
     Route: 048
     Dates: start: 20051101, end: 20090305

REACTIONS (9)
  - BACTERIAL INFECTION [None]
  - CANDIDIASIS [None]
  - CITROBACTER INFECTION [None]
  - COMPRESSION FRACTURE [None]
  - ENTEROBACTER INFECTION [None]
  - EXTRADURAL ABSCESS [None]
  - LUNG INFECTION PSEUDOMONAL [None]
  - PNEUMONIA [None]
  - STAPHYLOCOCCAL INFECTION [None]
